FAERS Safety Report 5228566-2 (Version None)
Quarter: 2007Q1

REPORT INFORMATION
  Report Type: 
  Country: None (occurrence: None)
  Receive Date: 20070205
  Receipt Date: 20070129
  Transmission Date: 20070707
  Serious: Yes (Other)
  Sender: FDA-Public Use
  Company Number: JP-AVENTIS-200512286JP

PATIENT
  Age: 55 Year
  Sex: Male

DRUGS (1)
  1. AMARYL [Suspect]
     Indication: DIABETES MELLITUS
     Route: 048
     Dates: start: 20020308, end: 20050805

REACTIONS (3)
  - HYPERTHYROIDISM [None]
  - HYPOCHOLESTEROLAEMIA [None]
  - IRON DEFICIENCY ANAEMIA [None]
